FAERS Safety Report 8913944 (Version 2)
Quarter: 2013Q2

REPORT INFORMATION
  Report Type: Spontaneous
  Country: US (occurrence: US)
  Receive Date: 20121119
  Receipt Date: 20130405
  Transmission Date: 20140414
  Serious: No
  Sender: FDA-Public Use
  Company Number: US-009507513-1210USA005563

PATIENT
  Age: 33 Year
  Sex: Male

DRUGS (5)
  1. VICTRELIS [Suspect]
     Indication: HEPATITIS C
     Dosage: 800 MG, Q8H
     Route: 048
     Dates: start: 20120808
  2. VICTRELIS [Suspect]
     Dosage: 800 MG, Q8H
     Route: 048
     Dates: start: 20121005
  3. VICTRELIS [Suspect]
     Dosage: 800 MG, TID
     Route: 048
     Dates: start: 20130222
  4. PEGASYS [Suspect]
     Indication: HEPATITIS C
  5. RIBAPAK [Suspect]
     Indication: HEPATITIS C

REACTIONS (3)
  - Rash pustular [Unknown]
  - Rash [Unknown]
  - Pruritus generalised [Unknown]
